FAERS Safety Report 7910515-7 (Version None)
Quarter: 2011Q4

REPORT INFORMATION
  Report Type: 
  Country: None (occurrence: None)
  Receive Date: 20111111
  Receipt Date: 20111028
  Transmission Date: 20120403
  Serious: Yes (Hospitalization)
  Sender: FDA-Public Use
  Company Number: PHHO2011DK18330

PATIENT
  Sex: Female

DRUGS (5)
  1. EVEROLIMUS [Suspect]
     Dosage: 6 MG, QD
     Dates: start: 20111018
  2. ETOPOSIDE [Suspect]
     Indication: ACUTE MYELOID LEUKAEMIA
     Dosage: UNK
     Dates: start: 20111003, end: 20111011
  3. DAUNORUBICIN HCL [Suspect]
     Indication: ACUTE MYELOID LEUKAEMIA
     Dosage: UNK
     Dates: start: 20111003, end: 20111011
  4. EVEROLIMUS [Suspect]
     Indication: ACUTE MYELOID LEUKAEMIA
     Dosage: UNK
     Dates: start: 20111014, end: 20111017
  5. CYTARABINE [Suspect]
     Indication: ACUTE MYELOID LEUKAEMIA
     Dosage: UNK
     Dates: start: 20111003, end: 20111011

REACTIONS (3)
  - DIARRHOEA [None]
  - PLATELET COUNT DECREASED [None]
  - FEBRILE NEUTROPENIA [None]
